FAERS Safety Report 21549665 (Version 1)
Quarter: 2022Q4

REPORT INFORMATION
  Report Type: Spontaneous
  Country: AU (occurrence: AU)
  Receive Date: 20221103
  Receipt Date: 20221103
  Transmission Date: 20230112
  Serious: Yes (Hospitalization, Other)
  Sender: FDA-Public Use
  Company Number: AU-SAMSUNG BIOEPIS-SB-2022-27502

PATIENT
  Age: 20 Year
  Sex: Female

DRUGS (6)
  1. INFLIXIMAB [Suspect]
     Active Substance: INFLIXIMAB
     Indication: Colitis ulcerative
     Dosage: UNKNOWN (INDUCTION THERAPY)
     Route: 065
     Dates: start: 202107
  2. INFLIXIMAB [Suspect]
     Active Substance: INFLIXIMAB
     Indication: Cholangitis sclerosing
     Dosage: UNKNOWN, FOLLOWING INDUCTION THERAPY, INFLIXIMAB WAS CONTINUED 8-WEEKLY
     Route: 065
  3. MESALAMINE [Concomitant]
     Active Substance: MESALAMINE
     Indication: Colitis ulcerative
     Dosage: UNKNOWN
     Route: 065
  4. MESALAMINE [Concomitant]
     Active Substance: MESALAMINE
     Indication: Cholangitis sclerosing
  5. AZATHIOPRINE [Concomitant]
     Active Substance: AZATHIOPRINE
     Indication: Colitis ulcerative
     Route: 065
  6. AZATHIOPRINE [Concomitant]
     Active Substance: AZATHIOPRINE
     Indication: Cholangitis sclerosing

REACTIONS (3)
  - Cytomegalovirus infection [Recovering/Resolving]
  - Colitis ulcerative [Unknown]
  - Off label use [Unknown]
